FAERS Safety Report 21348246 (Version 1)
Quarter: 2022Q3

REPORT INFORMATION
  Report Type: Spontaneous
  Country: DE (occurrence: DE)
  Receive Date: 20220919
  Receipt Date: 20220919
  Transmission Date: 20221027
  Serious: Yes (Hospitalization, Other)
  Sender: FDA-Public Use
  Company Number: None

PATIENT
  Age: 65 Year
  Sex: Female
  Weight: 83 kg

DRUGS (5)
  1. VENLAFAXINE HYDROCHLORIDE [Suspect]
     Active Substance: VENLAFAXINE HYDROCHLORIDE
     Indication: Product used for unknown indication
     Dosage: 1-0-0-0, SUSTAINED-RELEASE CAPSULES
     Route: 048
  2. VENLAFAXINE HYDROCHLORIDE [Suspect]
     Active Substance: VENLAFAXINE HYDROCHLORIDE
     Dosage: 1-0-0-0, SUSTAINED-RELEASE CAPSULES
     Route: 048
  3. BENSERAZIDE\LEVODOPA [Concomitant]
     Active Substance: BENSERAZIDE\LEVODOPA
     Indication: Product used for unknown indication
     Dosage: 12.5/50 MG, 0-1-1-0
     Route: 048
  4. EFEROX [Concomitant]
     Active Substance: LEVOTHYROXINE SODIUM
     Indication: Product used for unknown indication
     Dosage: 0.5-0-0-0
     Route: 048
  5. TELMISARTAN [Concomitant]
     Active Substance: TELMISARTAN
     Indication: Product used for unknown indication
     Dosage: 1-0-0-0
     Route: 048

REACTIONS (7)
  - Feeling hot [Unknown]
  - Atrial fibrillation [Unknown]
  - Dyspnoea [Unknown]
  - Palpitations [Unknown]
  - Abdominal pain [Unknown]
  - Palpitations [Unknown]
  - Contraindicated product administered [Unknown]
